FAERS Safety Report 6058935-2 (Version None)
Quarter: 2009Q1

REPORT INFORMATION
  Report Type: 
  Country: None (occurrence: None)
  Receive Date: 20090130
  Receipt Date: 20090128
  Transmission Date: 20090719
  Serious: Yes (Other)
  Sender: FDA-Public Use
  Company Number: US-BRISTOL-MYERS SQUIBB COMPANY-14485874

PATIENT

DRUGS (2)
  1. COUMADIN [Suspect]
  2. AVELOX [Interacting]

REACTIONS (2)
  - ADVERSE DRUG REACTION [None]
  - DRUG INTERACTION [None]
